FAERS Safety Report 9527667 (Version 1)
Quarter: 2013Q1

REPORT INFORMATION
  Report Type: Spontaneous
  Country: US (occurrence: None)
  Receive Date: 20130314
  Receipt Date: 20130314
  Transmission Date: 20140127
  Serious: Yes (Hospitalization)
  Sender: FDA-Public Use
  Company Number: THYM-1003446

PATIENT
  Age: 51 Year
  Sex: 0

DRUGS (6)
  1. THYMOGLOBULIN (ANTI-THYMOCYTE GLOBULIN (RABBIT)) POWDER FOR INFUSION [Suspect]
     Indication: TRANSPLANT REJECTION
     Dosage: 1.5 MG/KG X 5 DOSES
  2. THYMOGLOBULIN (ANTI-THYMOCYTE GLOBULIN (RABBIT)) POWDER FOR INFUSION [Suspect]
     Indication: TRANSPLANT REJECTION
     Dosage: 1.5 MG/KG X 5 DOSES
  3. RITUXIMAB (RITUXIMAB) [Suspect]
     Indication: TRANSPLANT REJECTION
  4. RITUXIMAB (RITUXIMAB) [Suspect]
     Indication: TRANSPLANT REJECTION
  5. IMMUNOGLOBULIN (IMMUNOGLOBULIN HUMAN NORMAL) [Concomitant]
  6. FUROSEMIDE (FUROSEMIDE) [Concomitant]

REACTIONS (1)
  - Serum sickness [None]
